FAERS Safety Report 8488679-9 (Version None)
Quarter: 2012Q3

REPORT INFORMATION
  Report Type: 
  Country: None (occurrence: None)
  Receive Date: 20120705
  Receipt Date: 20120704
  Transmission Date: 20120928
  Serious: Yes (Hospitalization, Other)
  Sender: FDA-Public Use
  Company Number: PHHY2012BR025099

PATIENT
  Sex: Female

DRUGS (7)
  1. SIMVASTATIN [Concomitant]
     Dosage: 1 DF, DAILY
     Route: 048
  2. HYDREA [Concomitant]
     Indication: BLOOD DISORDER
     Dosage: 2 DF (500 MG), DAILY
     Route: 048
  3. METFORMIN HCL [Concomitant]
     Indication: DIABETES MELLITUS
     Dosage: 1 DF (50 MG), DAILY
     Route: 048
  4. ZYLORIC ^FRESENIUS^ [Concomitant]
     Indication: BLOOD URIC ACID
     Dosage: 1 DF (300 MG), DAILY
     Route: 048
  5. CALCIUM CARBONATE [Concomitant]
     Dosage: 2 DF, DAILY
     Route: 048
  6. DIOVAN [Suspect]
     Dosage: 1 DF (80 MG), QD ( IN THE MORNING)
     Route: 048
  7. BAMIFIX [Concomitant]
     Indication: RESPIRATORY DISORDER
     Dosage: 1 DF (600 MG), DAILY
     Route: 048

REACTIONS (4)
  - BLOOD PRESSURE INCREASED [None]
  - APNOEA [None]
  - FATIGUE [None]
  - LUNG DISORDER [None]
